FAERS Safety Report 4281192-4 (Version None)
Quarter: 2004Q1

REPORT INFORMATION
  Report Type: 
  Country: None (occurrence: None)
  Receive Date: 20040127
  Receipt Date: 20040113
  Transmission Date: 20041129
  Serious: Yes (Hospitalization, Disabling, Other)
  Sender: FDA-Public Use
  Company Number: NSADSS2003017342

PATIENT
  Age: 84 Year
  Sex: Male

DRUGS (18)
  1. REMICADE [Suspect]
     Indication: RHEUMATOID ARTHRITIS
     Dosage: 1 IN 1 AS NECESSARY, INTRAVENOUS DRIP
     Route: 041
     Dates: start: 20001011, end: 20001011
  2. OXYGEN (OXYGEN) [Concomitant]
  3. PROSCAR [Concomitant]
  4. FOLATE (FOLATE SODIUM) [Concomitant]
  5. ASPRIN (ACETYLSALICYLIC ACID) [Concomitant]
  6. METHOTREXATE [Concomitant]
  7. FLOVENT [Concomitant]
  8. ATROVENT [Concomitant]
  9. PROVENTIL [Concomitant]
  10. FLONASE [Concomitant]
  11. COUMADIN [Concomitant]
  12. ATENOLOL [Concomitant]
  13. OXYCONTIN [Concomitant]
  14. LASIX [Concomitant]
  15. DILANTIN [Concomitant]
  16. CELEBREX [Concomitant]
  17. LORTAB [Concomitant]
  18. FOSAMAX [Concomitant]

REACTIONS (10)
  - ACID FAST STAIN POSITIVE [None]
  - BACTERIAL CULTURE POSITIVE [None]
  - BENIGN PROSTATIC HYPERPLASIA [None]
  - DRUG INEFFECTIVE [None]
  - GASTRIC STENOSIS [None]
  - GASTRITIS [None]
  - HISTOPLASMOSIS [None]
  - OESOPHAGEAL STENOSIS [None]
  - SMEAR SITE UNSPECIFIED ABNORMAL [None]
  - TUBERCULOSIS [None]
